FAERS Safety Report 8368251-1 (Version None)
Quarter: 2012Q2

REPORT INFORMATION
  Report Type: 
  Country: None (occurrence: None)
  Receive Date: 20120517
  Receipt Date: 20120508
  Transmission Date: 20120825
  Serious: Yes (Hospitalization)
  Sender: FDA-Public Use
  Company Number: JP-MERCK-1204USA02303

PATIENT
  Age: 87 Year
  Sex: Female

DRUGS (6)
  1. OLMESARTAN MEDOXOMIL [Suspect]
     Route: 048
     Dates: end: 20120323
  2. COZAAR [Suspect]
     Route: 048
     Dates: start: 20090801, end: 20120323
  3. GASMOTIN [Concomitant]
     Route: 048
  4. REMODELLIN [Concomitant]
     Route: 048
  5. AMLODIPINE BESYLATE [Concomitant]
     Route: 048
  6. RABEPRAZOLE SODIUM [Concomitant]
     Route: 048

REACTIONS (2)
  - SICK SINUS SYNDROME [None]
  - HYPERKALAEMIA [None]
